FAERS Safety Report 8877704 (Version 1)
Quarter: 2012Q4

REPORT INFORMATION
  Report Type: 
  Country: AT (occurrence: AT)
  Receive Date: 20121024
  Receipt Date: 20121024
  Transmission Date: 20130627
  Serious: Yes (Death, Hospitalization, Other)
  Sender: FDA-Public Use
  Company Number: PHHY2012AT087032

PATIENT
  Age: 65 Year
  Sex: Male
  Weight: 92.8 kg

DRUGS (1)
  1. GLIVEC [Suspect]
     Indication: CHRONIC MYELOID LEUKAEMIA
     Dosage: 400 mg, UNK
     Route: 048
     Dates: start: 200906, end: 20120912

REACTIONS (2)
  - Pleural effusion [Fatal]
  - General physical health deterioration [Unknown]
